FAERS Safety Report 25570161 (Version 1)
Quarter: 2025Q3

REPORT INFORMATION
  Report Type: Spontaneous
  Country: EU (occurrence: EU)
  Receive Date: 20250717
  Receipt Date: 20250717
  Transmission Date: 20251021
  Serious: Yes (Other)
  Sender: HETERO
  Company Number: EU-HETERO-AMR2025DE03933

PATIENT

DRUGS (2)
  1. MELPHALAN [Suspect]
     Active Substance: MELPHALAN
     Indication: Plasma cell myeloma
     Route: 065
  2. MELPHALAN [Suspect]
     Active Substance: MELPHALAN
     Route: 065

REACTIONS (3)
  - Mucosal inflammation [Unknown]
  - Febrile neutropenia [Unknown]
  - Diarrhoea [Unknown]
